FAERS Safety Report 15048886 (Version 1)
Quarter: 2018Q2

REPORT INFORMATION
  Report Type: Spontaneous
  Country: JP (occurrence: JP)
  Receive Date: 20180622
  Receipt Date: 20180622
  Transmission Date: 20180711
  Serious: Yes (Hospitalization)
  Sender: FDA-Public Use
  Company Number: JP-TEVA-2018-JP-913640

PATIENT
  Age: 87 Year
  Sex: Female

DRUGS (6)
  1. PRANLUKAST [Concomitant]
     Active Substance: PRANLUKAST
     Indication: ASTHMA
     Route: 065
  2. PREDNISOLONE. [Suspect]
     Active Substance: PREDNISOLONE
     Indication: EOSINOPHILIA
     Dosage: WITH GANCICLOVIR, LATER REDUCED TO 10MG/DAY
     Route: 065
  3. FUROSEMIDE. [Concomitant]
     Active Substance: FUROSEMIDE
     Indication: ASTHMA
     Route: 065
  4. PREDNISOLONE. [Suspect]
     Active Substance: PREDNISOLONE
     Dosage: FINALLY DISCONTINUED
     Route: 065
  5. PREDNISOLONE. [Suspect]
     Active Substance: PREDNISOLONE
     Indication: ASTHMA
     Dosage: CONTINUOUS ADMINISTRATION FOR AT LEAST TEN YEARS, WHICH WAS INCREASED TO 40MG/DAY
     Route: 065
  6. GANCICLOVIR. [Concomitant]
     Active Substance: GANCICLOVIR
     Indication: CYTOMEGALOVIRUS INFECTION
     Route: 065

REACTIONS (5)
  - Anaemia [Recovering/Resolving]
  - Weight decreased [Recovering/Resolving]
  - Gastrointestinal haemorrhage [Recovered/Resolved]
  - Vomiting [Recovering/Resolving]
  - Strongyloidiasis [Recovered/Resolved]
